FAERS Safety Report 6125690-7 (Version None)
Quarter: 2009Q1

REPORT INFORMATION
  Report Type: 
  Country: None (occurrence: None)
  Receive Date: 20090319
  Receipt Date: 20090319
  Transmission Date: 20090719
  Serious: No
  Sender: FDA-Public Use
  Company Number: None

PATIENT
  Sex: Female
  Weight: 90.7194 kg

DRUGS (1)
  1. ZETIA [Suspect]
     Indication: BLOOD TRIGLYCERIDES
     Dosage: 10 MG ONCE A DAY PO
     Route: 048
     Dates: start: 20070518, end: 20090319

REACTIONS (1)
  - FLATULENCE [None]
